FAERS Safety Report 19677178 (Version 1)
Quarter: 2021Q3

REPORT INFORMATION
  Report Type: Spontaneous
  Country: LB (occurrence: LB)
  Receive Date: 20210810
  Receipt Date: 20210810
  Transmission Date: 20211014
  Serious: Yes (Hospitalization, Other)
  Sender: FDA-Public Use
  Company Number: LB-LUPIN PHARMACEUTICALS INC.-2021-14184

PATIENT
  Age: 35 Year
  Sex: Male

DRUGS (1)
  1. TADALAFIL. [Suspect]
     Active Substance: TADALAFIL
     Indication: DRUG THERAPY
     Dosage: 3 DOSAGE FORM, TABLET 5 MG
     Route: 048

REACTIONS (1)
  - Subarachnoid haemorrhage [Recovering/Resolving]
